FAERS Safety Report 25981117 (Version 1)
Quarter: 2025Q4

REPORT INFORMATION
  Report Type: Spontaneous
  Country: CN (occurrence: CN)
  Receive Date: 20251030
  Receipt Date: 20251030
  Transmission Date: 20260118
  Serious: Yes (Hospitalization)
  Sender: BEIGENE
  Company Number: CN-BEIGENE-BGN-2025-017856

PATIENT
  Age: 78 Year
  Weight: 60 kg

DRUGS (3)
  1. TISLELIZUMAB [Suspect]
     Active Substance: TISLELIZUMAB
     Indication: Lung neoplasm malignant
     Dosage: 200 MILLIGRAM, ONCE
  2. NEDAPLATIN [Suspect]
     Active Substance: NEDAPLATIN
     Indication: Lung neoplasm malignant
     Dosage: 100 MILLIGRAM ONCE
  3. PACLITAXEL [Suspect]
     Active Substance: PACLITAXEL
     Indication: Lung neoplasm malignant
     Dosage: 400 MILLIGRAM ONCE

REACTIONS (2)
  - Myelosuppression [Unknown]
  - Blood pressure increased [Unknown]
